FAERS Safety Report 13170483 (Version 1)
Quarter: 2017Q1

REPORT INFORMATION
  Report Type: Spontaneous
  Country: DE (occurrence: DE)
  Receive Date: 20170131
  Receipt Date: 20170131
  Transmission Date: 20170428
  Serious: Yes (Other)
  Sender: FDA-Public Use
  Company Number: DE-IMPAX LABORATORIES, INC-2017-IPXL-00152

PATIENT
  Age: 28 Year
  Sex: Male

DRUGS (4)
  1. DIAZEPAM. [Concomitant]
     Active Substance: DIAZEPAM
     Indication: ANXIETY DISORDER
  2. BACLOFEN. [Suspect]
     Active Substance: BACLOFEN
     Indication: ANXIETY DISORDER
  3. BACLOFEN. [Suspect]
     Active Substance: BACLOFEN
     Indication: DEPRESSION
     Dosage: 1 G, DAILY
     Route: 065
  4. DIAZEPAM. [Concomitant]
     Active Substance: DIAZEPAM
     Indication: DEPRESSION
     Dosage: 60 MG, DAILY
     Route: 065

REACTIONS (2)
  - Drug dependence [Unknown]
  - Toxicity to various agents [Unknown]
